FAERS Safety Report 7075565-4 (Version None)
Quarter: 2010Q4

REPORT INFORMATION
  Report Type: 
  Country: None (occurrence: None)
  Receive Date: 20101030
  Receipt Date: 20100922
  Transmission Date: 20110411
  Serious: No
  Sender: FDA-Public Use
  Company Number: US-WYE-H17688010

PATIENT
  Sex: Female

DRUGS (3)
  1. ADVIL PM [Suspect]
     Indication: PAIN
     Dosage: 1 CAPLET ONCE
     Route: 048
     Dates: start: 20100922, end: 20100922
  2. ADVIL PM [Suspect]
     Indication: INSOMNIA
  3. ADVIL PM [Suspect]
     Indication: SINUS HEADACHE

REACTIONS (1)
  - FEELING ABNORMAL [None]
